FAERS Safety Report 7025002-0 (Version None)
Quarter: 2010Q4

REPORT INFORMATION
  Report Type: 
  Country: None (occurrence: None)
  Receive Date: 20101001
  Receipt Date: 20100929
  Transmission Date: 20110411
  Serious: Yes (Other)
  Sender: FDA-Public Use
  Company Number: SE-WYE-G06745110

PATIENT
  Sex: Female

DRUGS (9)
  1. RAPAMUNE [Suspect]
     Indication: SQUAMOUS CELL CARCINOMA
     Dosage: DOSE 1 MG DAILY
     Route: 048
     Dates: start: 20100623
  2. SELOKEN ZOC [Concomitant]
  3. ENTOCORT EC [Concomitant]
  4. CALCICHEW-D3 [Concomitant]
  5. KAJOS [Concomitant]
  6. PREDNISOLON [Concomitant]
  7. NORMORIX [Concomitant]
  8. WARAN [Suspect]
     Dosage: DOSE UNKNOWN
     Route: 048
  9. ACLASTA [Concomitant]

REACTIONS (2)
  - MELAENA [None]
  - PROTHROMBIN LEVEL DECREASED [None]
